FAERS Safety Report 8215921-1 (Version None)
Quarter: 2012Q1

REPORT INFORMATION
  Report Type: 
  Country: None (occurrence: None)
  Receive Date: 20120316
  Receipt Date: 20120306
  Transmission Date: 20120608
  Serious: Yes (Other)
  Sender: FDA-Public Use
  Company Number: GB-JNJFOC-20120304585

PATIENT
  Age: 53 Year
  Sex: Male

DRUGS (1)
  1. INFLIXIMAB, RECOMBINANT [Suspect]
     Indication: PYODERMA GANGRENOSUM
     Dosage: 3 DOSES; 3 WEEKS APART
     Route: 042

REACTIONS (1)
  - MULTIPLE MYELOMA [None]
